FAERS Safety Report 9432331 (Version 1)
Quarter: 2013Q3

REPORT INFORMATION
  Report Type: Spontaneous
  Country: US (occurrence: None)
  Receive Date: 20130730
  Receipt Date: 20130730
  Transmission Date: 20140515
  Serious: No
  Sender: FDA-Public Use
  Company Number: None

PATIENT
  Age: 71 Year
  Sex: Female
  Weight: 95.26 kg

DRUGS (1)
  1. SULAR [Suspect]
     Indication: HYPERTENSION
     Dates: start: 20130615

REACTIONS (6)
  - Pruritus [None]
  - Local swelling [None]
  - Headache [None]
  - Nausea [None]
  - Flushing [None]
  - Body temperature increased [None]
